FAERS Safety Report 5614254-7 (Version None)
Quarter: 2008Q1

REPORT INFORMATION
  Report Type: 
  Country: None (occurrence: None)
  Receive Date: 20080205
  Receipt Date: 20080124
  Transmission Date: 20080703
  Serious: Yes (Other)
  Sender: FDA-Public Use
  Company Number: US-PFIZER INC-2007101301

PATIENT
  Sex: Female

DRUGS (1)
  1. CHANTIX [Suspect]
     Indication: SMOKING CESSATION THERAPY

REACTIONS (10)
  - ABNORMAL DREAMS [None]
  - AGITATION [None]
  - DISTURBANCE IN ATTENTION [None]
  - DYSGEUSIA [None]
  - FEAR [None]
  - MEMORY IMPAIRMENT [None]
  - MENTAL IMPAIRMENT [None]
  - PARANOIA [None]
  - SINUS HEADACHE [None]
  - SUICIDAL IDEATION [None]
